FAERS Safety Report 11600429 (Version 1)
Quarter: 2015Q3

REPORT INFORMATION
  Report Type: Spontaneous
  Country: US (occurrence: US)
  Receive Date: 20150916
  Receipt Date: 20150916
  Transmission Date: 20151125
  Serious: No
  Sender: FDA-Public Use
  Company Number: US-ELI_LILLY_AND_COMPANY-US201406006401

PATIENT
  Sex: Male

DRUGS (5)
  1. HUMALOG [Suspect]
     Active Substance: INSULIN LISPRO
     Indication: TYPE 2 DIABETES MELLITUS
     Dosage: 80 U, QD
     Route: 065
     Dates: start: 201402, end: 20140606
  2. LISINOPRIL. [Concomitant]
     Active Substance: LISINOPRIL
  3. LANTUS [Concomitant]
     Active Substance: INSULIN GLARGINE
     Dosage: UNK
     Route: 065
     Dates: start: 1999
  4. GLUCOPHAGE [Concomitant]
     Active Substance: METFORMIN HYDROCHLORIDE
     Route: 065
  5. TESTOSTERONE. [Concomitant]
     Active Substance: TESTOSTERONE
     Route: 065

REACTIONS (6)
  - Blood testosterone decreased [Unknown]
  - Eczema [Unknown]
  - Rash [Not Recovered/Not Resolved]
  - Stress [Unknown]
  - Fungal rhinitis [Unknown]
  - Poor quality sleep [Unknown]
